FAERS Safety Report 4446187-6 (Version None)
Quarter: 2004Q3

REPORT INFORMATION
  Report Type: 
  Country: None (occurrence: None)
  Receive Date: 20040907
  Receipt Date: 20040901
  Transmission Date: 20050211
  Serious: Yes (Other)
  Sender: FDA-Public Use
  Company Number: USA-2004-0016652

PATIENT
  Sex: Female

DRUGS (2)
  1. BETADINE [Suspect]
     Indication: PREOPERATIVE CARE
     Dosage: TOPICAL
     Route: 061
  2. BETADINE [Suspect]
     Indication: STERILISATION
     Dosage: TOPICAL
     Route: 061

REACTIONS (3)
  - APPLICATION SITE REACTION [None]
  - SKIN IRRITATION [None]
  - SKIN ULCER [None]
